FAERS Safety Report 10411756 (Version 1)
Quarter: 2014Q2

REPORT INFORMATION
  Report Type: Spontaneous
  Country: US (occurrence: None)
  Receive Date: 20140604
  Receipt Date: 20140604
  Transmission Date: 20141212
  Serious: Yes (Hospitalization)
  Sender: FDA-Public Use
  Company Number: 163-POMAL-14041762

PATIENT
  Age: 70 Year
  Sex: Female
  Weight: 59.88 kg

DRUGS (16)
  1. POMALYST [Suspect]
     Indication: PLASMA CELL MYELOMA
     Dosage: 21 IN 21D
     Dates: start: 20140320, end: 2014
  2. ZOMETA (ZOLEDRONIC ACID) [Concomitant]
  3. VALTREX (VALACICLOVIR HYDROCHLORIDE) [Concomitant]
  4. ATIVAN (LORAZEPAM) [Concomitant]
  5. KLOR-CON (POTASSIUM CHLORIDE) [Concomitant]
  6. PROTONIX [Concomitant]
  7. IMODIUIM A-D (LOPERAMIDE HYDROCHLORIDE) [Concomitant]
  8. DIFLUCAN (FLUCONAZOLE) [Concomitant]
  9. ROXICODONE (OXYCODONE HYDROCHLORIDE) [Concomitant]
  10. FENTANYL (FENTANYL) [Concomitant]
  11. ZOFRAN (ONDANSETRON HYDROCHLORIDE) [Concomitant]
  12. FLUDROCORTISONE (FLUDROCORTISONE) [Concomitant]
  13. ECOTRIN  (ACETYLSALICYLIC ACID) [Concomitant]
  14. MIDODRIN [Concomitant]
  15. VITAMIN D (ERGOCALCIFEROL) [Concomitant]
  16. PAXIL (PAROXETINE HYDROCHLORIDE) [Concomitant]

REACTIONS (1)
  - Hypersensitivity [None]
